FAERS Safety Report 21389441 (Version 13)
Quarter: 2024Q4

REPORT INFORMATION
  Report Type: Report from Study
  Country: DE (occurrence: DE)
  Receive Date: 20220929
  Receipt Date: 20241226
  Transmission Date: 20250115
  Serious: No
  Sender: ROCHE
  Company Number: DE-ROCHE-2989634

PATIENT
  Age: 57 Year
  Sex: Female
  Weight: 83.0 kg

DRUGS (10)
  1. OCREVUS [Suspect]
     Active Substance: OCRELIZUMAB
     Indication: Relapsing-remitting multiple sclerosis
     Dosage: 188 DAYS
     Route: 042
     Dates: start: 20210326
  2. OCREVUS [Suspect]
     Active Substance: OCRELIZUMAB
     Route: 042
     Dates: start: 20220428
  3. OCREVUS [Suspect]
     Active Substance: OCRELIZUMAB
     Route: 042
     Dates: start: 20230908
  4. OCREVUS [Suspect]
     Active Substance: OCRELIZUMAB
     Route: 042
  5. COMIRNATY (TOZINAMERAN) [Suspect]
     Active Substance: TOZINAMERAN
     Indication: Product used for unknown indication
     Route: 065
  6. IBUPROFEN [Concomitant]
     Active Substance: IBUPROFEN
  7. CHOLECALCIFEROL [Concomitant]
     Active Substance: CHOLECALCIFEROL
     Dosage: 2000 IU (1X/DAY).
  8. ROSUVASTATIN [Concomitant]
     Active Substance: ROSUVASTATIN
  9. DALFAMPRIDINE [Concomitant]
     Active Substance: DALFAMPRIDINE
  10. SYNOFEN [Concomitant]

REACTIONS (20)
  - Fatigue [Not Recovered/Not Resolved]
  - Inappropriate schedule of product administration [Unknown]
  - Initial insomnia [Recovered/Resolved]
  - Weight increased [Recovering/Resolving]
  - Throat irritation [Recovered/Resolved]
  - Dysphonia [Recovered/Resolved]
  - COVID-19 [Recovered/Resolved]
  - Paraesthesia [Recovered/Resolved]
  - Oropharyngeal pain [Recovered/Resolved]
  - Dyspepsia [Recovered/Resolved]
  - Spinal disorder [Not Recovered/Not Resolved]
  - Muscular weakness [Not Recovered/Not Resolved]
  - Throat tightness [Not Recovered/Not Resolved]
  - Pain in extremity [Not Recovered/Not Resolved]
  - Hypoaesthesia [Not Recovered/Not Resolved]
  - Vertigo [Recovering/Resolving]
  - Abdominal distension [Recovered/Resolved]
  - Erythema [Recovered/Resolved]
  - Abdominal pain [Recovered/Resolved]
  - Blood test abnormal [Not Recovered/Not Resolved]

NARRATIVE: CASE EVENT DATE: 20210326
